FAERS Safety Report 8299515-8 (Version None)
Quarter: 2012Q2

REPORT INFORMATION
  Report Type: 
  Country: None (occurrence: None)
  Receive Date: 20120419
  Receipt Date: 20120405
  Transmission Date: 20120825
  Serious: Yes (Other)
  Sender: FDA-Public Use
  Company Number: GB-PFIZER INC-GB-WYE-G01593808

PATIENT
  Age: 78 Year
  Sex: Male
  Weight: 78 kg

DRUGS (12)
  1. AMIODARONE HCL [Suspect]
     Dosage: 200 MG, 1X/DAY
  2. LANSOPRAZOLE [Suspect]
     Dosage: 30 MG, 1X/DAY
     Route: 065
  3. PERINDOPRIL [Suspect]
     Dosage: 2.0 MG, DAILY
     Route: 065
  4. DIGOXIN [Suspect]
     Dosage: 0.125 MG, DAILY
     Route: 065
  5. FUROSEMIDE [Suspect]
     Dosage: 120 MG, DAILY
  6. ACIPIMOX [Suspect]
     Dosage: 250 MG, 2X/DAY
     Route: 048
  7. BISOPROLOL FUMARATE [Suspect]
     Dosage: 7.5 MG, 1X/DAY (2MG IN THE MORNING AND 5MG LATER)
     Route: 048
  8. EZETIMIBE [Suspect]
     Dosage: 10 MG, DAILY
     Route: 048
  9. WARFARIN [Concomitant]
     Dosage: UNK
  10. FUROSEMIDE [Suspect]
     Dosage: 80 MG, 2X/DAY
     Route: 065
  11. FUROSEMIDE [Suspect]
     Dosage: 160 MG, DAILY
  12. ASPIRIN [Suspect]
     Dosage: 75 MG, DAILY
     Route: 065

REACTIONS (15)
  - DYSPNOEA EXERTIONAL [None]
  - CARDIAC MURMUR [None]
  - OEDEMA PERIPHERAL [None]
  - VENTRICULAR TACHYCARDIA [None]
  - OEDEMA [None]
  - ATRIAL FIBRILLATION [None]
  - LEFT VENTRICULAR DYSFUNCTION [None]
  - VENOUS PRESSURE JUGULAR INCREASED [None]
  - PARAESTHESIA [None]
  - DISSOCIATION [None]
  - DRUG INEFFECTIVE [None]
  - FATIGUE [None]
  - DIZZINESS [None]
  - DYSPNOEA [None]
  - FEELING ABNORMAL [None]
